FAERS Safety Report 6887789-7 (Version None)
Quarter: 2010Q3

REPORT INFORMATION
  Report Type: 
  Country: None (occurrence: None)
  Receive Date: 20100730
  Receipt Date: 20100721
  Transmission Date: 20110219
  Serious: Yes (Other)
  Sender: FDA-Public Use
  Company Number: CO-PFIZER INC-2010092662

PATIENT
  Sex: Female

DRUGS (4)
  1. LIPITOR [Suspect]
     Indication: BLOOD CHOLESTEROL INCREASED
     Dosage: UNK MG, UNK
  2. LIPITOR [Suspect]
     Dosage: 10 MG, 1X/DAY
     Route: 048
     Dates: start: 20090801
  3. EUTIROX [Concomitant]
     Indication: THYROID DISORDER
     Dosage: 50 MG, 1X/DAY
  4. VITALUX PLUS [Concomitant]
     Indication: MACULAR OEDEMA
     Dosage: UNK, 1XDAY

REACTIONS (1)
  - MACULAR OEDEMA [None]
